FAERS Safety Report 7035628-6 (Version None)
Quarter: 2010Q4

REPORT INFORMATION
  Report Type: 
  Country: None (occurrence: None)
  Receive Date: 20101008
  Receipt Date: 20100928
  Transmission Date: 20110411
  Serious: Yes (Other)
  Sender: FDA-Public Use
  Company Number: CL-PFIZER INC-2010126133

PATIENT
  Sex: Male

DRUGS (1)
  1. AZULFIDINE [Suspect]
     Dosage: 3 MG, 1X/DAY
     Route: 048

REACTIONS (1)
  - MUSCLE FATIGUE [None]
